FAERS Safety Report 8248619-4 (Version None)
Quarter: 2012Q1

REPORT INFORMATION
  Report Type: 
  Country: None (occurrence: None)
  Receive Date: 20120330
  Receipt Date: 20100226
  Transmission Date: 20120608
  Serious: Yes (Other)
  Sender: FDA-Public Use
  Company Number: PHHY2010TH093695

PATIENT
  Sex: Male

DRUGS (2)
  1. GLEEVEC [Suspect]
     Dosage: 100 MG, BID (MORNING 1 TABLET AND EVENING 1 TABLET)
     Route: 048
  2. GLEEVEC [Suspect]
     Indication: CHRONIC MYELOID LEUKAEMIA
     Dosage: 400 MG DAILY
     Route: 048

REACTIONS (7)
  - BLOOD DISORDER [None]
  - LUNG DISORDER [None]
  - CARDIAC DISORDER [None]
  - FATIGUE [None]
  - DYSPNOEA [None]
  - BLOOD TEST ABNORMAL [None]
  - RESPIRATORY DISORDER [None]
